FAERS Safety Report 14561828 (Version 1)
Quarter: 2018Q1

REPORT INFORMATION
  Report Type: Spontaneous
  Country: US (occurrence: US)
  Receive Date: 20180222
  Receipt Date: 20180222
  Transmission Date: 20180509
  Serious: No
  Sender: FDA-Public Use
  Company Number: PHEH2018US006187

PATIENT

DRUGS (1)
  1. ILARIS [Suspect]
     Active Substance: CANAKINUMAB
     Indication: PRODUCT USED FOR UNKNOWN INDICATION
     Route: 058

REACTIONS (8)
  - Abdominal pain upper [Unknown]
  - Tachycardia [Unknown]
  - Headache [Unknown]
  - Joint swelling [Unknown]
  - Blood pressure increased [Unknown]
  - Chest discomfort [Unknown]
  - Pain [Unknown]
  - Dizziness [Unknown]
